FAERS Safety Report 10295084 (Version 1)
Quarter: 2014Q3

REPORT INFORMATION
  Report Type: Spontaneous
  Country: GB (occurrence: GB)
  Receive Date: 20140711
  Receipt Date: 20140711
  Transmission Date: 20150326
  Serious: Yes (Other)
  Sender: FDA-Public Use
  Company Number: GB-ACCORD-024681

PATIENT
  Sex: Female

DRUGS (14)
  1. TACROLIMUS. [Suspect]
     Active Substance: TACROLIMUS
     Indication: RENAL TRANSPLANT
     Dosage: 2 MG, BID
  2. DALTEPARIN/DALTEPARIN SODIUM [Concomitant]
     Indication: PROPHYLAXIS
  3. ALFACALCIDOL [Concomitant]
     Active Substance: ALFACALCIDOL
  4. OXYCONTIN [Concomitant]
     Active Substance: OXYCODONE HYDROCHLORIDE
  5. PARACETAMOL [Concomitant]
     Active Substance: ACETAMINOPHEN
  6. CYCLOPHOSPHAMIDE/CYCLOPHOSPHAMIDE MONOHYDRATE [Interacting]
     Active Substance: CYCLOPHOSPHAMIDE
     Indication: DIFFUSE LARGE B-CELL LYMPHOMA
     Dates: start: 20140620
  7. VINCRISTINE [Interacting]
     Active Substance: VINCRISTINE
     Indication: DIFFUSE LARGE B-CELL LYMPHOMA
     Dates: start: 20140620
  8. PREDNISOLONE. [Interacting]
     Active Substance: PREDNISOLONE
     Indication: PREMEDICATION
     Dosage: 80 MG, UNK
     Dates: start: 20140616
  9. CYCLIZINE [Concomitant]
     Active Substance: CYCLIZINE
  10. AZATHIOPRINE. [Interacting]
     Active Substance: AZATHIOPRINE
     Indication: PRODUCT USED FOR UNKNOWN INDICATION
     Dates: end: 20140620
  11. RITUXIMAB [Interacting]
     Active Substance: RITUXIMAB
     Indication: DIFFUSE LARGE B-CELL LYMPHOMA
     Dates: start: 20140620
  12. ONDANSETRON [Concomitant]
     Active Substance: ONDANSETRON
  13. GABAPENTIN. [Concomitant]
     Active Substance: GABAPENTIN
  14. OMEPRAZOLE. [Concomitant]
     Active Substance: OMEPRAZOLE

REACTIONS (2)
  - Drug interaction [Unknown]
  - Immunosuppressant drug level increased [Unknown]
